FAERS Safety Report 6250103-4 (Version None)
Quarter: 2009Q2

REPORT INFORMATION
  Report Type: 
  Country: None (occurrence: None)
  Receive Date: 20090629
  Receipt Date: 20090611
  Transmission Date: 20091009
  Serious: Yes (Other)
  Sender: FDA-Public Use
  Company Number: MX-GENENTECH-285761

PATIENT
  Sex: Male

DRUGS (3)
  1. XOLAIR [Suspect]
     Indication: ASTHMA
     Dosage: 375 MG, Q15D
  2. XOLAIR [Suspect]
     Indication: DERMATITIS ATOPIC
  3. XOLAIR [Suspect]
     Indication: BLOOD IMMUNOGLOBULIN E INCREASED

REACTIONS (1)
  - PARAPROTEINAEMIA [None]
